FAERS Safety Report 20872468 (Version 1)
Quarter: 2022Q2

REPORT INFORMATION
  Report Type: Spontaneous
  Country: AU (occurrence: AU)
  Receive Date: 20220525
  Receipt Date: 20220525
  Transmission Date: 20220721
  Serious: Yes (Hospitalization, Other)
  Sender: FDA-Public Use
  Company Number: AU-PFIZER INC-202200654505

PATIENT
  Age: 49 Year
  Sex: Male

DRUGS (9)
  1. DESVENLAFAXINE SUCCINATE [Suspect]
     Active Substance: DESVENLAFAXINE SUCCINATE
     Dosage: UNK (3 DAYS PRIOR TO PRESENTATION)
  2. DESVENLAFAXINE SUCCINATE [Suspect]
     Active Substance: DESVENLAFAXINE SUCCINATE
     Dosage: 50 MG
  3. DESVENLAFAXINE SUCCINATE [Suspect]
     Active Substance: DESVENLAFAXINE SUCCINATE
     Dosage: 50 MG, DAILY (MORNING); MEDICATION ON DISCHARGE
  4. LORAZEPAM [Concomitant]
     Active Substance: LORAZEPAM
     Dosage: 3 MG, DAILY (1MG MORNING, 2MG NIGHT)
  5. LORAZEPAM [Concomitant]
     Active Substance: LORAZEPAM
     Dosage: 1 MG, 2X/DAY (DOWNTITRATED; MEDICATION ON DISCHARGE)
  6. PROMETHAZINE [Concomitant]
     Active Substance: PROMETHAZINE HYDROCHLORIDE
     Dosage: 50 MG, DAILY
  7. PROMETHAZINE [Concomitant]
     Active Substance: PROMETHAZINE HYDROCHLORIDE
     Dosage: 50 MG, DAILY (MEDICATION ON DISCHARGE)
  8. HYDROCHLOROTHIAZIDE\TELMISARTAN [Concomitant]
     Active Substance: HYDROCHLOROTHIAZIDE\TELMISARTAN
     Dosage: 40/12.5MG MORNING (MEDICATION ON DISCHARGE)
  9. DICLOFENAC [Concomitant]
     Active Substance: DICLOFENAC
     Dosage: UNK, 4X/DAY; APPLY TO AFFECTED AREA; MEDICATION ON DISCHARGE

REACTIONS (5)
  - Suicidal ideation [Recovering/Resolving]
  - Condition aggravated [Recovering/Resolving]
  - Anxiety [Recovering/Resolving]
  - Drug ineffective [Unknown]
  - Poor quality sleep [Unknown]
